FAERS Safety Report 23934145 (Version 4)
Quarter: 2024Q3

REPORT INFORMATION
  Report Type: Spontaneous
  Country: US (occurrence: US)
  Receive Date: 20240603
  Receipt Date: 20240725
  Transmission Date: 20241017
  Serious: Yes (Other)
  Sender: CALLIDITAS THERAPEUTICS
  Company Number: US-Calliditas-2024CAL00861

PATIENT
  Age: 49 Year
  Sex: Male
  Weight: 144 kg

DRUGS (1)
  1. TARPEYO [Suspect]
     Active Substance: BUDESONIDE
     Indication: Chronic kidney disease
     Route: 048
     Dates: start: 20240330

REACTIONS (8)
  - Abdominal discomfort [Recovered/Resolved]
  - Diarrhoea [Recovered/Resolved]
  - Abnormal faeces [Recovered/Resolved]
  - Hypertension [Recovered/Resolved]
  - Hypertensive urgency [Recovered/Resolved]
  - Headache [Unknown]
  - Visual impairment [Unknown]
  - Stress [Unknown]
